FAERS Safety Report 8874153 (Version 3)
Quarter: 2013Q3

REPORT INFORMATION
  Report Type: Spontaneous
  Country: US (occurrence: US)
  Receive Date: 20121023
  Receipt Date: 20130920
  Transmission Date: 20140515
  Serious: Yes (Hospitalization, Other)
  Sender: FDA-Public Use
  Company Number: US-ROCHE-794613

PATIENT
  Age: 14 Year
  Sex: Female
  Weight: 63.56 kg

DRUGS (2)
  1. ACCUTANE [Suspect]
     Indication: ACNE
     Route: 065
     Dates: start: 19981124, end: 19981215
  2. ACCUTANE [Suspect]
     Route: 065
     Dates: start: 19990524, end: 20001114

REACTIONS (8)
  - Crohn^s disease [Unknown]
  - Suicidal ideation [Unknown]
  - Depression [Unknown]
  - Mental disorder [Unknown]
  - Bipolar disorder [Unknown]
  - Back pain [Unknown]
  - Cheilitis [Unknown]
  - Xerosis [Unknown]
